FAERS Safety Report 20591932 (Version 3)
Quarter: 2022Q2

REPORT INFORMATION
  Report Type: Spontaneous
  Country: US (occurrence: US)
  Receive Date: 20220314
  Receipt Date: 20220527
  Transmission Date: 20220721
  Serious: No
  Sender: FDA-Public Use
  Company Number: US-BoehringerIngelheim-2022-BI-159219

PATIENT
  Sex: Female

DRUGS (1)
  1. COMBIVENT RESPIMAT [Suspect]
     Active Substance: ALBUTEROL SULFATE\IPRATROPIUM BROMIDE
     Indication: Product used for unknown indication

REACTIONS (3)
  - Drug ineffective [Unknown]
  - Product delivery mechanism issue [Unknown]
  - Device issue [Unknown]
